FAERS Safety Report 5391411-9 (Version None)
Quarter: 2007Q3

REPORT INFORMATION
  Report Type: 
  Country: None (occurrence: None)
  Receive Date: 20070719
  Receipt Date: 20070713
  Transmission Date: 20080115
  Serious: Yes (Hospitalization)
  Sender: FDA-Public Use
  Company Number: US-SANOFI-SYNTHELABO-F01200402965

PATIENT
  Sex: Female
  Weight: 81.5 kg

DRUGS (7)
  1. OXALIPLATIN [Suspect]
     Indication: NON-SMALL CELL LUNG CANCER
     Route: 042
     Dates: start: 20040916, end: 20040916
  2. DURAGESIC-100 [Concomitant]
     Indication: PAIN
     Dosage: 100 MCG
     Route: 062
     Dates: start: 20040903
  3. VALIUM [Concomitant]
     Indication: ANXIETY
     Dosage: 5 MG
     Route: 048
     Dates: start: 20040701
  4. LORTAB [Concomitant]
     Indication: PAIN
     Dosage: 7.5 MG
     Route: 048
     Dates: start: 20040601
  5. MOBIC [Concomitant]
     Indication: PAIN
     Dosage: 7.5 MG
     Route: 048
     Dates: start: 20040501
  6. VERAPAMIL [Concomitant]
     Indication: HYPERTENSION
     Dosage: 240 MG
     Route: 048
     Dates: start: 19940101, end: 20040909
  7. GEMCITABINE HCL [Suspect]
     Route: 042
     Dates: start: 20040922, end: 20040922

REACTIONS (1)
  - PANCYTOPENIA [None]
